FAERS Safety Report 5126564-0 (Version None)
Quarter: 2006Q4

REPORT INFORMATION
  Report Type: 
  Country: None (occurrence: None)
  Receive Date: 20061012
  Receipt Date: 20061012
  Transmission Date: 20070319
  Serious: Yes (Other)
  Sender: FDA-Public Use
  Company Number: None

PATIENT
  Age: 70 Year
  Sex: Male
  Weight: 124.7392 kg

DRUGS (1)
  1. ELIDEL [Suspect]
     Indication: PRURITUS
     Dosage: LIGHT COAT   TWICE DAILY
     Dates: start: 20060724, end: 20060724

REACTIONS (10)
  - BLISTER [None]
  - DRY SKIN [None]
  - INSOMNIA [None]
  - OEDEMA PERIPHERAL [None]
  - PRURITUS [None]
  - SCRATCH [None]
  - SKIN ATROPHY [None]
  - SKIN CHAPPED [None]
  - SKIN DISCOLOURATION [None]
  - SKIN EXFOLIATION [None]
